FAERS Safety Report 9815095 (Version 3)
Quarter: 2016Q1

REPORT INFORMATION
  Report Type: Spontaneous
  Country: US (occurrence: US)
  Receive Date: 20140114
  Receipt Date: 20160323
  Transmission Date: 20160526
  Serious: Yes (Other)
  Sender: FDA-Public Use
  Company Number: US-009507513-1401USA005161

PATIENT
  Age: 71 Year
  Sex: Male

DRUGS (5)
  1. ASPIRIN. [Concomitant]
     Active Substance: ASPIRIN
  2. METOPROLOL SUCCINATE. [Concomitant]
     Active Substance: METOPROLOL SUCCINATE
  3. ROSUVASTATIN CALCIUM. [Concomitant]
     Active Substance: ROSUVASTATIN CALCIUM
  4. HEPARIN [Concomitant]
     Active Substance: HEPARIN SODIUM
     Indication: ACUTE MYOCARDIAL INFARCTION
  5. INTEGRILIN [Suspect]
     Active Substance: EPTIFIBATIDE
     Dosage: 180 MG/KG FOLLOWED BY 2 MCG/KG/MIN

REACTIONS (4)
  - Chills [Recovered/Resolved]
  - Hypoxia [Recovered/Resolved]
  - Thrombocytopenia [Recovered/Resolved]
  - Purpura [Recovered/Resolved]
